FAERS Safety Report 23106457 (Version 1)
Quarter: 2023Q4

REPORT INFORMATION
  Report Type: Spontaneous
  Country: US (occurrence: US)
  Receive Date: 20231025
  Receipt Date: 20231025
  Transmission Date: 20240110
  Serious: Yes (Death, Hospitalization)
  Sender: FDA-Public Use
  Company Number: US-AMGEN-USASP2023186005

PATIENT
  Age: 59 Year
  Sex: Male

DRUGS (2)
  1. BEVACIZUMAB [Suspect]
     Active Substance: BEVACIZUMAB
     Indication: Bladder cancer
     Dosage: 5 MILLIGRAM/KG
     Route: 065
  2. TEMOZOLOMIDE [Concomitant]
     Active Substance: TEMOZOLOMIDE
     Dosage: 150 MILLIGRAM/M^2
     Route: 065

REACTIONS (9)
  - Metastatic carcinoma of the bladder [Fatal]
  - Physical deconditioning [Unknown]
  - Perinephric abscess [Unknown]
  - COVID-19 [Unknown]
  - Performance status decreased [Unknown]
  - Decreased appetite [Unknown]
  - Weight decreased [Unknown]
  - Fatigue [Unknown]
  - Off label use [Unknown]
